FAERS Safety Report 4874702-7 (Version None)
Quarter: 2006Q1

REPORT INFORMATION
  Report Type: 
  Country: None (occurrence: None)
  Receive Date: 20060106
  Receipt Date: 20050920
  Transmission Date: 20060701
  Serious: Yes (Hospitalization, Disabling)
  Sender: FDA-Public Use
  Company Number: US-MERCK-0509USA03104

PATIENT
  Age: 44 Year
  Sex: Female
  Weight: 53 kg

DRUGS (17)
  1. VIOXX [Suspect]
     Indication: SPONDYLITIS
     Route: 048
     Dates: start: 19990901, end: 20040901
  2. VIOXX [Suspect]
     Route: 048
     Dates: start: 19990901, end: 20040901
  3. VIOXX [Suspect]
     Route: 048
     Dates: start: 19990901, end: 20040901
  4. PREVACID [Concomitant]
     Route: 065
  5. LORTAB [Concomitant]
     Indication: BACK PAIN
     Route: 065
  6. INDERAL [Concomitant]
     Route: 065
  7. FOSAMAX [Concomitant]
     Route: 048
  8. ELAVIL [Concomitant]
     Route: 048
  9. VIOXX [Suspect]
     Indication: FLANK PAIN
     Route: 048
     Dates: start: 19990901, end: 20040901
  10. VIOXX [Suspect]
     Route: 048
     Dates: start: 19990901, end: 20040901
  11. VIOXX [Suspect]
     Route: 048
     Dates: start: 19990901, end: 20040901
  12. VIOXX [Suspect]
     Route: 048
     Dates: start: 19990901, end: 20040901
  13. VIOXX [Suspect]
     Route: 048
     Dates: start: 19990901, end: 20040901
  14. VIOXX [Suspect]
     Route: 048
     Dates: start: 19990901, end: 20040901
  15. VIOXX [Suspect]
     Route: 048
     Dates: start: 19990901, end: 20040901
  16. VIOXX [Suspect]
     Route: 048
     Dates: start: 19990901, end: 20040901
  17. VIOXX [Suspect]
     Route: 048
     Dates: start: 19990901, end: 20040901

REACTIONS (29)
  - ACUTE MYOCARDIAL INFARCTION [None]
  - ANAEMIA [None]
  - BLOOD CHOLESTEROL INCREASED [None]
  - BRONCHITIS [None]
  - CHEST PAIN [None]
  - CORONARY ARTERY DISEASE [None]
  - DEPRESSION [None]
  - DYSLIPIDAEMIA [None]
  - DYSPNOEA [None]
  - FUNGAL INFECTION [None]
  - GASTROOESOPHAGEAL REFLUX DISEASE [None]
  - HEADACHE [None]
  - HYPERSENSITIVITY [None]
  - HYPERTENSION [None]
  - INTERVERTEBRAL DISC DISORDER [None]
  - MIGRAINE [None]
  - MUSCULOSKELETAL CHEST PAIN [None]
  - MUSCULOSKELETAL DISCOMFORT [None]
  - NASOPHARYNGITIS [None]
  - NAUSEA [None]
  - OEDEMA PERIPHERAL [None]
  - PNEUMONIA [None]
  - RHYTHM IDIOVENTRICULAR [None]
  - SCIATICA [None]
  - SINUSITIS [None]
  - TINNITUS [None]
  - URTICARIA [None]
  - UTERINE HAEMORRHAGE [None]
  - VERTIGO [None]
